FAERS Safety Report 21897248 (Version 1)
Quarter: 2023Q1

REPORT INFORMATION
  Report Type: Spontaneous
  Country: US (occurrence: None)
  Receive Date: 20230120
  Receipt Date: 20230120
  Transmission Date: 20230417
  Serious: Yes (Death)
  Sender: FDA-Public Use
  Company Number: None

PATIENT
  Age: 88 Year
  Sex: Male
  Weight: 53.98 kg

DRUGS (11)
  1. ABIRATERONE [Suspect]
     Active Substance: ABIRATERONE
     Indication: Prostate cancer
     Dosage: FREQUENCY : DAILY;?
     Route: 048
     Dates: start: 20220915
  2. AMIODARONE [Concomitant]
     Active Substance: AMIODARONE
  3. AVASTIN [Concomitant]
     Active Substance: BEVACIZUMAB
  4. CEFUROXIME [Concomitant]
     Active Substance: CEFUROXIME
  5. DIGOXIN [Concomitant]
     Active Substance: DIGOXIN
  6. ELIQUIS [Concomitant]
     Active Substance: APIXABAN
  7. LUPRON [Concomitant]
     Active Substance: LEUPROLIDE ACETATE
  8. METOPROLOL [Concomitant]
     Active Substance: METOPROLOL
  9. PREVERSIVION AREDS2 [Concomitant]
  10. SINEMET [Concomitant]
     Active Substance: CARBIDOPA\LEVODOPA
  11. VITAMIN D3 [Concomitant]
     Active Substance: CHOLECALCIFEROL

REACTIONS (2)
  - Pneumonia [None]
  - Sepsis [None]

NARRATIVE: CASE EVENT DATE: 20221208
